FAERS Safety Report 14525692 (Version 2)
Quarter: 2018Q1

REPORT INFORMATION
  Report Type: Spontaneous
  Country: JP (occurrence: JP)
  Receive Date: 20180213
  Receipt Date: 20180319
  Transmission Date: 20180509
  Serious: Yes (Life-Threatening, Hospitalization, Other)
  Sender: FDA-Public Use
  Company Number: JP-TEVA-2018-JP-852420

PATIENT
  Age: 81 Year
  Sex: Female

DRUGS (16)
  1. VINCRISTINE SULFATE. [Concomitant]
     Active Substance: VINCRISTINE SULFATE
     Indication: NODAL MARGINAL ZONE B-CELL LYMPHOMA
     Route: 041
  2. CHLORPHENIRAMINE MALEATE. [Concomitant]
     Active Substance: CHLORPHENIRAMINE MALEATE
     Indication: PROPHYLAXIS
     Route: 042
     Dates: start: 20171228
  3. DEXAMETHASONE SODIUM PHOSPHATE. [Concomitant]
     Active Substance: DEXAMETHASONE SODIUM PHOSPHATE
     Indication: PROPHYLAXIS
     Route: 042
     Dates: start: 20171228
  4. DEXAMETHASONE SODIUM PHOSPHATE. [Concomitant]
     Active Substance: DEXAMETHASONE SODIUM PHOSPHATE
     Route: 042
     Dates: start: 20171229
  5. ACETAMINOPHEN. [Concomitant]
     Active Substance: ACETAMINOPHEN
     Indication: PROPHYLAXIS
     Route: 048
     Dates: start: 20171228
  6. PREDNISOLONE. [Concomitant]
     Active Substance: PREDNISOLONE
     Indication: NODAL MARGINAL ZONE B-CELL LYMPHOMA
     Route: 048
  7. SULFAMETHOXAZOLE W/TRIMETHOPRIM [Concomitant]
     Active Substance: SULFAMETHOXAZOLE\TRIMETHOPRIM
     Indication: PROPHYLAXIS
     Route: 048
     Dates: start: 20171228, end: 20180110
  8. RITUXIMAB. [Suspect]
     Active Substance: RITUXIMAB
     Indication: NODAL MARGINAL ZONE B-CELL LYMPHOMA
     Route: 041
     Dates: start: 20161129, end: 20171228
  9. CYCLOPHOSPHAMIDE. [Concomitant]
     Active Substance: CYCLOPHOSPHAMIDE
     Indication: NODAL MARGINAL ZONE B-CELL LYMPHOMA
     Route: 041
  10. GRANISETRON HYDROCHLORIDE. [Concomitant]
     Active Substance: GRANISETRON HYDROCHLORIDE
     Indication: PROPHYLAXIS
     Route: 042
     Dates: start: 20171228, end: 20171229
  11. APREPITANT. [Concomitant]
     Active Substance: APREPITANT
     Route: 048
     Dates: start: 20171229
  12. APREPITANT. [Concomitant]
     Active Substance: APREPITANT
     Indication: PROPHYLAXIS
     Route: 048
     Dates: start: 20171228
  13. BENDAMUSTINE HYDROCHLORIDE. [Suspect]
     Active Substance: BENDAMUSTINE HYDROCHLORIDE
     Indication: NODAL MARGINAL ZONE B-CELL LYMPHOMA
     Dosage: (1 CYCLE)
     Route: 042
     Dates: start: 20171228, end: 20171229
  14. FILGRASTIM [Concomitant]
     Active Substance: FILGRASTIM
     Indication: PROPHYLAXIS
     Route: 058
     Dates: start: 20171230, end: 20180102
  15. DOXORUBICIN HYDROCHLORIDE. [Concomitant]
     Active Substance: DOXORUBICIN HYDROCHLORIDE
     Indication: NODAL MARGINAL ZONE B-CELL LYMPHOMA
     Route: 041
  16. CEFTRIAXONE SODIUM. [Concomitant]
     Active Substance: CEFTRIAXONE SODIUM
     Indication: URINARY TRACT INFECTION
     Route: 065
     Dates: start: 20171222

REACTIONS (8)
  - Endophthalmitis [Not Recovered/Not Resolved]
  - Depressed level of consciousness [Unknown]
  - Systemic candida [Not Recovered/Not Resolved]
  - Renal impairment [Unknown]
  - Neutrophil count decreased [Unknown]
  - Hypernatraemia [Recovering/Resolving]
  - Prescribed underdose [Unknown]
  - Enterococcal infection [Unknown]

NARRATIVE: CASE EVENT DATE: 20171228
